FAERS Safety Report 5546018-7 (Version None)
Quarter: 2007Q4

REPORT INFORMATION
  Report Type: 
  Country: None (occurrence: None)
  Receive Date: 20071123
  Receipt Date: 20061114
  Transmission Date: 20080405
  Serious: Yes (Hospitalization)
  Sender: FDA-Public Use
  Company Number: 2006US003419

PATIENT
  Age: 48 Year
  Sex: Male
  Weight: 84.8 kg

DRUGS (13)
  1. LEUCOVORIN CALCIUM [Suspect]
     Indication: BILIARY NEOPLASM
     Dosage: 25 MG/M2, Q4WKS X QX5D, INTRAVENOUS
     Route: 042
     Dates: start: 20061030
  2. FLUOROURACIL [Suspect]
     Indication: BILIARY NEOPLASM
     Dosage: 375 MG/M2, Q4WKS QX5D, IV BOLUS
     Route: 040
     Dates: start: 20061030
  3. OXYCODONE HCL [Concomitant]
  4. FENTANYL [Concomitant]
  5. PHENERGAN [Concomitant]
  6. FUROSEMIDE [Concomitant]
  7. LACTULOSE [Concomitant]
  8. ROPINROLE (ROPINROLE) [Concomitant]
  9. QUETIAPINE FUMARATE [Concomitant]
  10. DIVALPROEX (VALPROATE SEMISODIUM) [Concomitant]
  11. VENLAFAXINE HCL [Concomitant]
  12. SENNOSIDE (SENNOSIDE A+B CALCIUM) [Concomitant]
  13. DOCUSATE SODIUM (DOCUSATE SODIUM) [Concomitant]

REACTIONS (2)
  - PROCEDURAL NAUSEA [None]
  - PROCEDURAL VOMITING [None]
